FAERS Safety Report 11812975 (Version 1)
Quarter: 2015Q4

REPORT INFORMATION
  Report Type: Spontaneous
  Country: US (occurrence: US)
  Receive Date: 20151209
  Receipt Date: 20151209
  Transmission Date: 20160305
  Serious: Yes (Hospitalization, Other)
  Sender: FDA-Public Use
  Company Number: US-ROCHE-1674498

PATIENT
  Age: 29 Year
  Sex: Female

DRUGS (1)
  1. RITUXAN [Suspect]
     Active Substance: RITUXIMAB
     Indication: SYSTEMIC LUPUS ERYTHEMATOSUS
     Dosage: REPEAT IN 2 WKS, THEN EVERY 6 MONTHS
     Route: 065
     Dates: start: 201411

REACTIONS (5)
  - Migraine [Unknown]
  - Dehydration [Unknown]
  - Pruritus [Unknown]
  - Hypersensitivity [Unknown]
  - Chest discomfort [Unknown]
